FAERS Safety Report 16893320 (Version 1)
Quarter: 2019Q4

REPORT INFORMATION
  Report Type: Report from Study
  Country: None (occurrence: US)
  Receive Date: 20191008
  Receipt Date: 20191008
  Transmission Date: 20200122
  Serious: Yes (Other)
  Sender: FDA-Public Use
  Company Number: US-ABBVIE-19K-163-2948920-00

PATIENT
  Sex: Female

DRUGS (1)
  1. SYNTHROID [Suspect]
     Active Substance: LEVOTHYROXINE SODIUM
     Indication: PRODUCT USED FOR UNKNOWN INDICATION
     Route: 048

REACTIONS (7)
  - Atrioventricular block [Unknown]
  - Migraine [Unknown]
  - Fall [Unknown]
  - Fatigue [Unknown]
  - Alopecia [Unknown]
  - Contusion [Unknown]
  - Gastrointestinal disorder [Unknown]
